FAERS Safety Report 18806630 (Version 1)
Quarter: 2021Q1

REPORT INFORMATION
  Report Type: Spontaneous
  Country: US (occurrence: US)
  Receive Date: 20210128
  Receipt Date: 20210128
  Transmission Date: 20210419
  Serious: Yes (Other)
  Sender: FDA-Public Use
  Company Number: None

PATIENT
  Age: 91 Year
  Sex: Female

DRUGS (2)
  1. ELIQUIS [Concomitant]
     Active Substance: APIXABAN
     Dates: start: 20171219
  2. JAKAFI [Suspect]
     Active Substance: RUXOLITINIB
     Indication: MYELODYSPLASTIC SYNDROME
     Route: 048
     Dates: start: 20170220

REACTIONS (1)
  - Squamous cell carcinoma [None]

NARRATIVE: CASE EVENT DATE: 20201223
